FAERS Safety Report 11700731 (Version 2)
Quarter: 2015Q4

REPORT INFORMATION
  Report Type: Spontaneous
  Country: US (occurrence: US)
  Receive Date: 20151105
  Receipt Date: 20151127
  Transmission Date: 20160304
  Serious: Yes (Death)
  Sender: FDA-Public Use
  Company Number: US-009507513-1510USA015276

PATIENT
  Age: 51 Year
  Sex: Male

DRUGS (1)
  1. NOXAFIL [Suspect]
     Active Substance: POSACONAZOLE
     Dosage: 100 MG, THREE TIMES A DAY
     Route: 048
     Dates: start: 20150121

REACTIONS (1)
  - Death [Fatal]

NARRATIVE: CASE EVENT DATE: 20151018
